FAERS Safety Report 21949023 (Version 1)
Quarter: 2023Q1

REPORT INFORMATION
  Report Type: Spontaneous
  Country: US (occurrence: None)
  Receive Date: 20230202
  Receipt Date: 20230202
  Transmission Date: 20230418
  Serious: No
  Sender: FDA-Public Use
  Company Number: None

PATIENT
  Sex: Female

DRUGS (1)
  1. ENTYVIO [Suspect]
     Active Substance: VEDOLIZUMAB
     Indication: Inflammatory bowel disease
     Dosage: OTHER STRENGTH : 300MG/VL;?OTHER QUANTITY : 300MG.VL;?FREQUENCY : MONTHLY;?
     Route: 042
     Dates: start: 202202

REACTIONS (4)
  - Inflammatory bowel disease [None]
  - Condition aggravated [None]
  - Pain [None]
  - Drug ineffective [None]
